FAERS Safety Report 7099248-X (Version None)
Quarter: 2010Q4

REPORT INFORMATION
  Report Type: 
  Country: None (occurrence: None)
  Receive Date: 20101112
  Receipt Date: 20101103
  Transmission Date: 20110411
  Serious: Yes (Other)
  Sender: FDA-Public Use
  Company Number: US-SANOFI-AVENTIS-2010SA067359

PATIENT
  Sex: Male

DRUGS (2)
  1. LANTUS [Suspect]
     Indication: TYPE 2 DIABETES MELLITUS
     Dosage: IN THE EVENING DOSE:75 UNIT(S)
     Route: 058
     Dates: start: 20100401
  2. SOLOSTAR [Suspect]
     Indication: TYPE 2 DIABETES MELLITUS
     Dates: start: 20100401

REACTIONS (2)
  - CARTILAGE INJURY [None]
  - WRONG TECHNIQUE IN DRUG USAGE PROCESS [None]
